FAERS Safety Report 10264342 (Version 1)
Quarter: 2014Q2

REPORT INFORMATION
  Report Type: Spontaneous
  Country: FR (occurrence: None)
  Receive Date: 20140624
  Receipt Date: 20140624
  Transmission Date: 20141212
  Serious: Yes (Hospitalization, Other)
  Sender: FDA-Public Use
  Company Number: IMP_07690_2014

PATIENT
  Age: 56 Year
  Sex: Female

DRUGS (2)
  1. BACLOFEN (BACLOFEN) [Suspect]
     Indication: ALCOHOL ABUSE
     Dosage: NOT THE PRESCRIBED DOSE, SUPPOSED DOSE
     Route: 048
  2. OXAZEPAM (OXAZEPAM) [Suspect]
     Indication: PRODUCT USED FOR UNKNOWN INDICATION
     Dosage: NOT THE PRESCRIBED DOSE, DF
     Route: 048

REACTIONS (7)
  - Depressed level of consciousness [None]
  - Confusional state [None]
  - Coma [None]
  - Coma scale abnormal [None]
  - Hyperthermia [None]
  - Toxicity to various agents [None]
  - Intentional overdose [None]
